FAERS Safety Report 13861495 (Version 1)
Quarter: 2017Q3

REPORT INFORMATION
  Report Type: Spontaneous
  Country: IT (occurrence: IT)
  Receive Date: 20170811
  Receipt Date: 20170811
  Transmission Date: 20171127
  Serious: Yes (Life-Threatening, Hospitalization, Other)
  Sender: FDA-Public Use
  Company Number: IT-MYLANLABS-2017M1048215

PATIENT

DRUGS (2)
  1. VERAPAMIL [Suspect]
     Active Substance: VERAPAMIL HYDROCHLORIDE
     Indication: PRODUCT USED FOR UNKNOWN INDICATION
     Dosage: 1600 MG, TOTAL
  2. ATENOLOL. [Suspect]
     Active Substance: ATENOLOL
     Indication: PRODUCT USED FOR UNKNOWN INDICATION
     Dosage: 2800 MG, TOTAL

REACTIONS (9)
  - Suicide attempt [Unknown]
  - Drug level increased [Unknown]
  - Sinus bradycardia [Unknown]
  - Pulse absent [Unknown]
  - Overdose [Unknown]
  - Heart rate decreased [Unknown]
  - Atrioventricular block first degree [Unknown]
  - Blood pressure decreased [Unknown]
  - Pulmonary oedema [Unknown]
